FAERS Safety Report 9696384 (Version 1)
Quarter: 2013Q4

REPORT INFORMATION
  Report Type: Spontaneous
  Country: AR (occurrence: AR)
  Receive Date: 20131119
  Receipt Date: 20131119
  Transmission Date: 20140711
  Serious: Yes (Hospitalization)
  Sender: FDA-Public Use
  Company Number: PHHY2013AR130991

PATIENT
  Age: 33 Year
  Sex: Male

DRUGS (8)
  1. BASILIXIMAB [Suspect]
  2. EVEROLIMUS [Suspect]
     Indication: PROPHYLAXIS AGAINST TRANSPLANT REJECTION
     Dosage: 1.50 MG, DAILY
  3. TACROLIMUS [Suspect]
     Indication: ANTIVIRAL PROPHYLAXIS
  4. TACROLIMUS [Suspect]
     Dosage: 7 MG
  5. PREDNISONE [Suspect]
     Indication: ANTIVIRAL PROPHYLAXIS
  6. MYCOPHENOLIC ACID [Suspect]
     Dosage: 1440 MG, DAILY
  7. GANCICLOVIR [Suspect]
     Indication: ANTIVIRAL PROPHYLAXIS
  8. ANTITHYMOCYTE IMMUNOGLOBULIN [Suspect]
     Dosage: 1.25 MG/KG, DAILY FOR 6 DAYS

REACTIONS (9)
  - Thrombotic microangiopathy [Unknown]
  - Renal impairment [Unknown]
  - Blood creatinine increased [Unknown]
  - Renal disorder [Unknown]
  - Kidney fibrosis [Unknown]
  - Renal atrophy [Unknown]
  - Blood bilirubin increased [Unknown]
  - Drug intolerance [Unknown]
  - Diarrhoea [Unknown]
